FAERS Safety Report 4577047-8 (Version None)
Quarter: 2005Q1

REPORT INFORMATION
  Report Type: 
  Country: None (occurrence: None)
  Receive Date: 20050208
  Receipt Date: 20050127
  Transmission Date: 20050727
  Serious: Yes (Other)
  Sender: FDA-Public Use
  Company Number: 2005023437

PATIENT
  Age: 49 Year
  Sex: Female

DRUGS (6)
  1. PROVERA [Suspect]
     Indication: HORMONE REPLACEMENT THERAPY
     Dosage: ORAL
     Route: 048
     Dates: start: 19990101, end: 19990101
  2. CONJUGATED ESTROGENS [Suspect]
     Indication: HORMONE REPLACEMENT THERAPY
     Dosage: ORAL
     Route: 048
     Dates: start: 19990101, end: 19990101
  3. PROVELLA-14 (ESTROGENS CONJUGATED, MEDROXYPROGESTERONE ACETATE) [Suspect]
     Indication: HORMONE REPLACEMENT THERAPY
     Dosage: ORAL
     Route: 048
     Dates: start: 20020101, end: 20020101
  4. ESTROGENS ESTERIFIED (ESTROGENS ESTERIFIED) [Suspect]
     Indication: HORMONE REPLACEMENT THERAPY
     Dates: start: 19990101, end: 19990101
  5. ESTRATEST HS (ESTROGENS ESTERIFIED, METHYLTESTOSTERONE0 [Concomitant]
     Indication: HORMONE REPLACEMENT THERAPY
     Dates: start: 19990101, end: 20010101
  6. PROGESTERONE (PROGESTERONE0 [Suspect]
     Dates: start: 19990101, end: 20010101

REACTIONS (1)
  - BREAST CANCER FEMALE [None]
